FAERS Safety Report 6920949-5 (Version None)
Quarter: 2010Q3

REPORT INFORMATION
  Report Type: 
  Country: None (occurrence: None)
  Receive Date: 20100812
  Receipt Date: 20100731
  Transmission Date: 20110219
  Serious: Yes (Other)
  Sender: FDA-Public Use
  Company Number: US-PFIZER INC-2010097009

PATIENT
  Sex: Female
  Weight: 43.1 kg

DRUGS (6)
  1. CHANTIX [Suspect]
     Indication: SMOKING CESSATION THERAPY
     Dosage: 0.5 MG, 1X/DAY
     Dates: start: 20100705
  2. CHANTIX [Suspect]
     Dosage: 0.5 MG, 2X/DAY
     Route: 048
  3. CHANTIX [Suspect]
     Dosage: 1 MG, 2X/DAY
     Dates: end: 20100729
  4. DORZOLAMIDE [Concomitant]
     Indication: GLAUCOMA
     Dosage: UNK
  5. ALPHAGAN [Concomitant]
     Indication: GLAUCOMA
     Dosage: UNK
  6. TRAVATAN [Concomitant]
     Indication: GLAUCOMA
     Dosage: UNK

REACTIONS (3)
  - CONFUSIONAL STATE [None]
  - EYE DISORDER [None]
  - PRURITUS [None]
